FAERS Safety Report 5424029-X (Version None)
Quarter: 2007Q3

REPORT INFORMATION
  Report Type: 
  Country: None (occurrence: None)
  Receive Date: 20070727
  Receipt Date: 20061005
  Transmission Date: 20080115
  Serious: Yes (Hospitalization)
  Sender: FDA-Public Use
  Company Number: THYM-11100

PATIENT
  Age: 54 Year
  Sex: Male

DRUGS (9)
  1. THYMOGLOBULIN [Suspect]
     Indication: LIVER TRANSPLANT
     Dosage: 1.5 MG/KG QOD IV
     Route: 042
     Dates: start: 20051205
  2. METHYLPREDNISOLONE 16MG TAB [Concomitant]
  3. PROGRAF [Concomitant]
  4. TENORMIN [Concomitant]
  5. RENITEC [Concomitant]
  6. MOPRAL [Concomitant]
  7. PLAVIX [Concomitant]
  8. ROVALCYTE [Concomitant]
  9. ASPEGIC 325 [Concomitant]

REACTIONS (4)
  - ASCITES INFECTION [None]
  - BILIARY TRACT INFECTION [None]
  - CHOLANGITIS [None]
  - HEPATIC FUNCTION ABNORMAL [None]
